FAERS Safety Report 13445009 (Version 1)
Quarter: 2017Q2

REPORT INFORMATION
  Report Type: Spontaneous
  Country: DK (occurrence: DK)
  Receive Date: 20170414
  Receipt Date: 20170414
  Transmission Date: 20170830
  Serious: Yes (Hospitalization)
  Sender: FDA-Public Use
  Company Number: DK-ABBVIE-17K-044-1940072-00

PATIENT
  Age: 59 Year
  Sex: Male

DRUGS (4)
  1. HUMIRA [Suspect]
     Active Substance: ADALIMUMAB
     Indication: ANKYLOSING SPONDYLITIS
     Route: 058
     Dates: start: 20111130, end: 20140703
  2. ATORVASTATIN [Concomitant]
     Active Substance: ATORVASTATIN
     Indication: PRODUCT USED FOR UNKNOWN INDICATION
  3. HUMIRA [Suspect]
     Active Substance: ADALIMUMAB
     Route: 058
     Dates: start: 201501, end: 201602
  4. CIMZIA [Suspect]
     Active Substance: CERTOLIZUMAB PEGOL
     Indication: ANKYLOSING SPONDYLITIS
     Route: 065
     Dates: start: 20140703, end: 201501

REACTIONS (24)
  - Abdominal hernia [Unknown]
  - Mood swings [Unknown]
  - Tooth disorder [Unknown]
  - Aortic occlusion [Unknown]
  - Hypersensitivity [Unknown]
  - Tinnitus [Unknown]
  - Thrombosis [Unknown]
  - Depression [Unknown]
  - Drug effect decreased [Unknown]
  - Chondropathy [Unknown]
  - Osteoarthritis [Unknown]
  - Tremor [Unknown]
  - Back pain [Unknown]
  - Arteriosclerosis coronary artery [Unknown]
  - Myalgia [Unknown]
  - Joint swelling [Unknown]
  - Inguinal hernia [Unknown]
  - Insomnia [Unknown]
  - Rash [Unknown]
  - Pain in extremity [Unknown]
  - Angina unstable [Unknown]
  - Erectile dysfunction [Unknown]
  - Onychoclasis [Unknown]
  - Intervertebral disc degeneration [Unknown]

NARRATIVE: CASE EVENT DATE: 201305
